FAERS Safety Report 7220979-2 (Version None)
Quarter: 2011Q1

REPORT INFORMATION
  Report Type: 
  Country: None (occurrence: None)
  Receive Date: 20110112
  Receipt Date: 20110106
  Transmission Date: 20110831
  Serious: Yes (Death, Hospitalization, Other)
  Sender: FDA-Public Use
  Company Number: PHHY2010JP73180

PATIENT
  Sex: Female
  Weight: 50 kg

DRUGS (12)
  1. TRIHEXYPHENIDYL HCL [Concomitant]
     Indication: PARKINSON'S DISEASE
     Dosage: 3 DF, UNK
     Route: 048
     Dates: start: 20101023, end: 20101030
  2. SYMMETREL [Suspect]
     Dosage: 300 MG DAILY
     Route: 048
     Dates: start: 20101007, end: 20101026
  3. NICERGOLINE [Concomitant]
     Dosage: 3 DF, UNK
     Route: 048
     Dates: start: 20100914, end: 20101030
  4. DIOVAN [Suspect]
     Indication: HYPERTENSION
     Dosage: 160 MG, UNK
     Route: 048
     Dates: start: 20100827, end: 20101030
  5. MAGLAX [Concomitant]
     Indication: CONSTIPATION
     Dosage: 3 DF, UNK
     Route: 048
     Dates: start: 20101005, end: 20101030
  6. AMLODIPINE [Concomitant]
  7. SEPAMIT [Concomitant]
     Indication: CEREBRAL INFARCTION
     Dosage: 1 G, UNK
     Route: 048
     Dates: start: 20101027, end: 20101030
  8. NEUOMIL [Suspect]
  9. MAGNESIUM OXIDE [Concomitant]
  10. ADALAT CC [Concomitant]
     Indication: CEREBRAL INFARCTION
     Dosage: 2 DF, UNK
     Route: 048
     Dates: start: 20100827, end: 20101026
  11. SYMMETREL [Suspect]
     Dosage: 150 MG DAILY
     Route: 048
     Dates: start: 20101027, end: 20101030
  12. RIVOTRIL [Concomitant]
     Indication: TREMOR
     Dosage: 1.5 DF, UNK
     Route: 048
     Dates: start: 20101027, end: 20101030

REACTIONS (5)
  - SEPSIS [None]
  - DISSEMINATED INTRAVASCULAR COAGULATION [None]
  - THALAMUS HAEMORRHAGE [None]
  - PNEUMONIA [None]
  - TREMOR [None]
